FAERS Safety Report 21072938 (Version 1)
Quarter: 2022Q3

REPORT INFORMATION
  Report Type: Spontaneous
  Country: US (occurrence: US)
  Receive Date: 20220712
  Receipt Date: 20220712
  Transmission Date: 20221027
  Serious: Yes (Hospitalization)
  Sender: FDA-Public Use
  Company Number: US-SA-SAC20220707000474

PATIENT
  Age: 17 Year
  Sex: Female

DRUGS (2)
  1. FABRAZYME [Suspect]
     Active Substance: AGALSIDASE BETA
     Indication: Fabry^s disease
     Dosage: 30 MG QOW
     Route: 042
  2. FABRAZYME [Suspect]
     Active Substance: AGALSIDASE BETA
     Indication: Fabry^s disease
     Dosage: 35 MG, QOW
     Route: 042
     Dates: start: 202206

REACTIONS (3)
  - Fall [Recovering/Resolving]
  - Head injury [Recovering/Resolving]
  - Concussion [Recovering/Resolving]

NARRATIVE: CASE EVENT DATE: 20220619
